FAERS Safety Report 4883058-5 (Version None)
Quarter: 2006Q1

REPORT INFORMATION
  Report Type: 
  Country: None (occurrence: None)
  Receive Date: 20060113
  Receipt Date: 20060102
  Transmission Date: 20060701
  Serious: Yes (Death, Hospitalization)
  Sender: FDA-Public Use
  Company Number: FR200512001206

PATIENT
  Age: 21 Year
  Sex: Female
  Weight: 112 kg

DRUGS (6)
  1. HUMATROPE [Suspect]
     Indication: HYPOPITUITARISM
     Dosage: 0.6 MG, DAILY (1/D), SUBCUTANEOUS
     Route: 058
     Dates: start: 20020606
  2. HYDROCORTISONE [Concomitant]
  3. LEVOTHYROXINE SODIUM [Concomitant]
  4. MINIRIN [Concomitant]
  5. PROVAMES (ESTRADIOL) [Concomitant]
  6. CHLORMADINONE ACETATE TAB [Concomitant]

REACTIONS (9)
  - ACUTE TONSILLITIS [None]
  - BRAIN OEDEMA [None]
  - COMA [None]
  - DISSEMINATED INTRAVASCULAR COAGULATION [None]
  - HAEMODYNAMIC INSTABILITY [None]
  - HEPATOCELLULAR DAMAGE [None]
  - MULTI-ORGAN FAILURE [None]
  - RENAL FAILURE [None]
  - TOXIC SHOCK SYNDROME STREPTOCOCCAL [None]
